FAERS Safety Report 15740728 (Version 1)
Quarter: 2018Q4

REPORT INFORMATION
  Report Type: Spontaneous
  Country: GB (occurrence: GB)
  Receive Date: 20181219
  Receipt Date: 20181219
  Transmission Date: 20190205
  Serious: Yes (Death, Other)
  Sender: FDA-Public Use
  Company Number: GB-PFIZER INC-2008AP04958

PATIENT
  Age: 22 Year
  Sex: Female

DRUGS (9)
  1. CANCIDAS [Concomitant]
     Active Substance: CASPOFUNGIN ACETATE
     Dosage: 35 MG, UNK
     Route: 042
     Dates: start: 200805
  2. LEVETIRACETAM. [Concomitant]
     Active Substance: LEVETIRACETAM
     Dosage: UNK
  3. MEROPENEM. [Suspect]
     Active Substance: MEROPENEM
     Indication: NEUTROPENIC SEPSIS
     Dosage: 2 G, 1X/DAY
     Route: 042
     Dates: start: 20080529, end: 20080618
  4. TRANEXAMIC ACID. [Concomitant]
     Active Substance: TRANEXAMIC ACID
     Indication: HAEMORRHAGE
     Dosage: UNK
     Dates: start: 20080602, end: 20080618
  5. CUBICIN [Suspect]
     Active Substance: DAPTOMYCIN
     Indication: ENTEROCOCCAL SEPSIS
  6. CASPOFUNGIN [Concomitant]
     Active Substance: CASPOFUNGIN
     Dosage: UNK
     Dates: start: 200805
  7. CUBICIN [Suspect]
     Active Substance: DAPTOMYCIN
     Indication: ENTEROCOCCAL INFECTION
     Dosage: 350 MG, ALTERNATE DAY
     Route: 042
     Dates: start: 20080609, end: 20080618
  8. CYCLOSPORINE. [Concomitant]
     Active Substance: CYCLOSPORINE
     Indication: APLASTIC ANAEMIA
     Dosage: UNK
     Dates: start: 200805
  9. THIOPENTAL [Concomitant]
     Active Substance: THIOPENTAL
     Dosage: UNK

REACTIONS (3)
  - Brain oedema [Fatal]
  - Haemorrhage intracranial [Fatal]
  - Seizure [Unknown]

NARRATIVE: CASE EVENT DATE: 20080616
